FAERS Safety Report 8985050 (Version 1)
Quarter: 2012Q4

REPORT INFORMATION
  Report Type: 
  Country: ES (occurrence: ES)
  Receive Date: 20121226
  Receipt Date: 20121226
  Transmission Date: 20130627
  Serious: Yes (Other)
  Sender: FDA-Public Use
  Company Number: PHHY2012ES117676

PATIENT
  Age: 53 Year
  Sex: Male

DRUGS (6)
  1. STALEVO [Suspect]
     Indication: PARKINSON^S DISEASE
     Dosage: 300 mg, UNK
     Route: 048
     Dates: start: 2008
  2. MIRAPEXIN [Suspect]
     Indication: PARKINSON^S DISEASE
     Dosage: 2.1 mg, UNK
     Route: 048
     Dates: start: 2008
  3. OMEPRAZOLE [Concomitant]
     Dosage: 20 mg, UNK
     Route: 048
  4. FUROSEMIDE [Concomitant]
     Dosage: 40 mg, UNK
     Route: 048
  5. ATENOLOL [Concomitant]
     Indication: HYPERTENSION
     Dosage: 50 mg, UNK
     Route: 048
  6. BOI-K ASPARTICO [Concomitant]

REACTIONS (1)
  - Impulse-control disorder [Not Recovered/Not Resolved]
